FAERS Safety Report 7389111-9 (Version None)
Quarter: 2011Q2

REPORT INFORMATION
  Report Type: 
  Country: None (occurrence: None)
  Receive Date: 20110401
  Receipt Date: 20110310
  Transmission Date: 20111010
  Serious: Yes (Hospitalization)
  Sender: FDA-Public Use
  Company Number: US-ASTRAZENECA-2011SE13478

PATIENT
  Age: 76 Year
  Sex: Male
  Weight: 53 kg

DRUGS (12)
  1. PLACEBO [Suspect]
     Indication: CARDIAC FAILURE CHRONIC
     Dosage: DAILY
     Route: 048
     Dates: start: 20100917, end: 20101015
  2. LASIX [Suspect]
     Route: 048
     Dates: start: 20100611
  3. EPLERENONE [Suspect]
     Dosage: DAILY
     Route: 048
     Dates: start: 20101016
  4. ALESION [Suspect]
     Indication: PRURITUS
     Route: 048
     Dates: start: 20100723
  5. BLOPRESS [Suspect]
     Indication: CARDIAC FAILURE
     Route: 048
     Dates: start: 20100512
  6. CRESTOR [Suspect]
     Indication: HYPERLIPIDAEMIA
     Route: 048
     Dates: start: 20100512
  7. TAKEPRON [Suspect]
     Indication: GASTRITIS PROPHYLAXIS
     Route: 048
     Dates: start: 20100512
  8. EPLERENONE [Suspect]
     Indication: CARDIAC FAILURE CHRONIC
     Dosage: DAILY
     Route: 048
     Dates: start: 20100917, end: 20101015
  9. ARTIST [Suspect]
     Route: 048
     Dates: start: 20110122
  10. PLACEBO [Suspect]
     Dosage: DAILY
     Route: 048
     Dates: start: 20101016
  11. ASPIRIN [Suspect]
     Indication: THROMBOSIS PROPHYLAXIS
     Route: 048
     Dates: start: 20100527
  12. ARTIST [Suspect]
     Indication: CARDIAC FAILURE
     Route: 048
     Dates: start: 20100528, end: 20110121

REACTIONS (1)
  - ANGINA PECTORIS [None]
